FAERS Safety Report 4345791-3 (Version None)
Quarter: 2004Q2

REPORT INFORMATION
  Report Type: 
  Country: None (occurrence: None)
  Receive Date: 20040421
  Receipt Date: 20040406
  Transmission Date: 20050107
  Serious: Yes (Death, Life-Threatening, Other)
  Sender: FDA-Public Use
  Company Number: I04-341-038

PATIENT
  Age: 57 Year
  Sex: Female
  Weight: 47 kg

DRUGS (9)
  1. VELCADE [Suspect]
     Indication: MULTIPLE MYELOMA
     Dosage: 3.5 MG; INTRAVENOUS BOLUS
     Route: 040
     Dates: start: 20040206, end: 20040206
  2. ALLOPURINOL TAB [Concomitant]
  3. CEFEPIME [Concomitant]
  4. ESOMEPRAZOLE [Concomitant]
  5. METOPROLOL [Concomitant]
  6. METRONIDAZOLE [Concomitant]
  7. PAROXETINE HCL [Concomitant]
  8. PREDNISOLONE [Concomitant]
  9. VORICONAZOLE [Concomitant]

REACTIONS (12)
  - BODY TEMPERATURE INCREASED [None]
  - HYPOTENSION [None]
  - INFUSION RELATED REACTION [None]
  - MEDICATION ERROR [None]
  - METABOLIC ACIDOSIS [None]
  - MULTI-ORGAN FAILURE [None]
  - PNEUMONIA [None]
  - RENAL FAILURE [None]
  - SEPSIS [None]
  - SHOCK [None]
  - THERAPY NON-RESPONDER [None]
  - WHITE BLOOD CELL COUNT DECREASED [None]
